FAERS Safety Report 19595699 (Version 2)
Quarter: 2021Q3

REPORT INFORMATION
  Report Type: Spontaneous
  Country: DK (occurrence: DK)
  Receive Date: 20210722
  Receipt Date: 20210908
  Transmission Date: 20211014
  Serious: Yes (Death, Hospitalization, Other)
  Sender: FDA-Public Use
  Company Number: DK-ACCORD-232214

PATIENT
  Age: 68 Year
  Sex: Female
  Weight: 75.1 kg

DRUGS (28)
  1. GEMCITABINE. [Suspect]
     Active Substance: GEMCITABINE
     Indication: DIFFUSE LARGE B-CELL LYMPHOMA STAGE IV
     Dosage: 1870 MILLIGRAM,SINGLE?NOT APPLICABLE.
     Route: 042
     Dates: start: 20210202, end: 20210531
  2. PARACETAMOL [Concomitant]
     Active Substance: ACETAMINOPHEN
     Dates: start: 20210514, end: 20210531
  3. COLECALCIFEROL [Concomitant]
     Active Substance: CHOLECALCIFEROL
     Dates: start: 20200408
  4. SOLU?MEDROL [Concomitant]
     Active Substance: METHYLPREDNISOLONE SODIUM SUCCINATE
     Dates: start: 20210319
  5. ATENOLOL/ATENOLOL HYDROCHLORIDE [Concomitant]
     Active Substance: ATENOLOL HYDROCHLORIDE
     Dates: start: 20210616, end: 20210704
  6. DIGOXIN. [Concomitant]
     Active Substance: DIGOXIN
     Dates: start: 20210705, end: 20210706
  7. FILGRASTIM [Concomitant]
     Active Substance: FILGRASTIM
     Dates: start: 20210612, end: 20210706
  8. PANTOPRAZOLE [Concomitant]
     Active Substance: PANTOPRAZOLE
     Dates: start: 20200511, end: 20210704
  9. ZOPICLONE [Concomitant]
     Active Substance: ZOPICLONE
     Dates: start: 20200318, end: 20210704
  10. ALLOPURINOL. [Concomitant]
     Active Substance: ALLOPURINOL
     Dates: start: 20210517, end: 20210517
  11. PREDNISOLONE. [Concomitant]
     Active Substance: PREDNISOLONE
     Dates: start: 20210514, end: 20210531
  12. KALIUMCHLORIDE [Concomitant]
     Dates: start: 20210608, end: 20210609
  13. UNIKALK [Concomitant]
     Dates: start: 20200402, end: 20210702
  14. ACICLOVIR [Concomitant]
     Active Substance: ACYCLOVIR
     Dates: start: 20210215, end: 20210624
  15. TOCILIZUMAB. [Concomitant]
     Active Substance: TOCILIZUMAB
     Dates: start: 20210707, end: 20210707
  16. ONDANSETRON [Concomitant]
     Active Substance: ONDANSETRON
     Dates: start: 20210304
  17. BISACODYL. [Concomitant]
     Active Substance: BISACODYL
     Dates: start: 20200916
  18. DEXAVIT [Concomitant]
     Dates: start: 20210707, end: 20210710
  19. SPIRONOLACTONE. [Concomitant]
     Active Substance: SPIRONOLACTONE
     Dates: start: 20210618, end: 20210630
  20. OXALIPLATIN. [Suspect]
     Active Substance: OXALIPLATIN
     Indication: DIFFUSE LARGE B-CELL LYMPHOMA STAGE IV
     Dosage: 187 MILLIGRAM, SINGLE?NOT APPLICABLE. 1Q2W
     Route: 042
     Dates: start: 20210202, end: 20210202
  21. UOBODY?CD3XCD20 [Suspect]
     Active Substance: EPCORITAMAB
     Indication: DIFFUSE LARGE B-CELL LYMPHOMA STAGE IV
     Dosage: PRIMIMG DOSE: 0.16 MILLIGRAM, SINGLE?DRUG INTERRUPTED
     Route: 058
     Dates: start: 20210202, end: 20210202
  22. PEGFILGRASTIM [Concomitant]
     Active Substance: PEGFILGRASTIM
     Dates: start: 20210520, end: 20210520
  23. AMIODARONE [Concomitant]
     Active Substance: AMIODARONE
     Dates: start: 20210706, end: 20210707
  24. FUROSEMIDE. [Concomitant]
     Active Substance: FUROSEMIDE
     Dates: start: 20210613, end: 20210704
  25. SODIUM CHLORIDE. [Concomitant]
     Active Substance: SODIUM CHLORIDE
     Dosage: PRN
     Route: 042
  26. CETIRIZINE [Concomitant]
     Active Substance: CETIRIZINE HYDROCHLORIDE
     Dates: start: 20210514, end: 20210531
  27. DALTEPARIN [Concomitant]
     Active Substance: DALTEPARIN
     Dates: start: 20210326, end: 20210525
  28. FACTOR I (FIBRINOGEN) [Concomitant]
     Active Substance: FIBRINOGEN HUMAN
     Dates: start: 20210707, end: 20210707

REACTIONS (7)
  - Ascites [Not Recovered/Not Resolved]
  - Hepatitis acute [Fatal]
  - Multiple organ dysfunction syndrome [Fatal]
  - Off label use [Unknown]
  - Capillary leak syndrome [Unknown]
  - Cytokine release syndrome [Recovered/Resolved]
  - Pleural effusion [Unknown]

NARRATIVE: CASE EVENT DATE: 20210606
